FAERS Safety Report 16865816 (Version 1)
Quarter: 2019Q3

REPORT INFORMATION
  Report Type: Spontaneous
  Country: PL (occurrence: PL)
  Receive Date: 20190930
  Receipt Date: 20190930
  Transmission Date: 20191005
  Serious: Yes (Hospitalization)
  Sender: FDA-Public Use
  Company Number: PL-ROCHE-2417348

PATIENT
  Age: 57 Year
  Sex: Male

DRUGS (7)
  1. CYCLOPHOSPHAMIDE. [Suspect]
     Active Substance: CYCLOPHOSPHAMIDE
     Indication: DIFFUSE LARGE B-CELL LYMPHOMA
     Dosage: RECENT DOSE ON /JUN/2016
     Route: 065
     Dates: start: 201601
  2. PREDNISOLONE. [Suspect]
     Active Substance: PREDNISOLONE
     Indication: DIFFUSE LARGE B-CELL LYMPHOMA
     Dosage: RECENT DOSE ON /JUN/2016
     Route: 065
     Dates: start: 201601
  3. ETOPOSIDE. [Suspect]
     Active Substance: ETOPOSIDE
     Indication: DIFFUSE LARGE B-CELL LYMPHOMA
     Dosage: IN CONTINUOUS INFUSION?RECENT DOSE ON /JUN/2016
     Route: 065
     Dates: start: 201601
  4. VINCRISTINE [Suspect]
     Active Substance: VINCRISTINE
     Indication: DIFFUSE LARGE B-CELL LYMPHOMA
     Dosage: RECENT DOSE ON /JUN/2016
     Route: 065
     Dates: start: 201601
  5. RITUXIMAB. [Suspect]
     Active Substance: RITUXIMAB
     Indication: DIFFUSE LARGE B-CELL LYMPHOMA
     Dosage: RECENT DOSE ON /JUN/2016
     Route: 065
     Dates: start: 201601
  6. CAELYX [Suspect]
     Active Substance: DOXORUBICIN HYDROCHLORIDE
     Indication: DIFFUSE LARGE B-CELL LYMPHOMA
     Dosage: RECENT DOSE ON /JUN/2016
     Route: 065
     Dates: start: 201601
  7. DOXORUBICIN [Suspect]
     Active Substance: DOXORUBICIN
     Indication: DIFFUSE LARGE B-CELL LYMPHOMA
     Dosage: RECENT DOSE ON /JUN/2016
     Route: 065
     Dates: start: 201906

REACTIONS (5)
  - Intentional product use issue [Unknown]
  - Polyneuropathy [Recovering/Resolving]
  - Paresis [Recovering/Resolving]
  - Off label use [Unknown]
  - Central nervous system lymphoma [Recovering/Resolving]

NARRATIVE: CASE EVENT DATE: 201601
